FAERS Safety Report 9462120 (Version 2)
Quarter: 2013Q4

REPORT INFORMATION
  Report Type: Spontaneous
  Country: JP (occurrence: JP)
  Receive Date: 20130816
  Receipt Date: 20131002
  Transmission Date: 20140711
  Serious: Yes (Other)
  Sender: FDA-Public Use
  Company Number: JP-SANOFI-AVENTIS-2013SA080152

PATIENT
  Age: 72 Year
  Sex: Male
  Weight: 58 kg

DRUGS (29)
  1. ELPLAT [Suspect]
     Indication: COLON CANCER
     Dosage: INFUSION SOLUTION
     Route: 041
     Dates: start: 20121130, end: 20121130
  2. ELPLAT [Suspect]
     Indication: COLON CANCER
     Dosage: INFUSION SOLUTION
     Route: 041
     Dates: start: 20121214, end: 20121214
  3. ELPLAT [Suspect]
     Indication: COLON CANCER
     Dosage: INFUSION SOLUTION
     Route: 041
     Dates: start: 20121228, end: 20121228
  4. ELPLAT [Suspect]
     Indication: COLON CANCER
     Dosage: INFUSION SOLUTION
     Route: 041
     Dates: start: 20130111, end: 20130111
  5. ELPLAT [Suspect]
     Indication: COLON CANCER
     Dosage: INFUSION SOLUTION
     Route: 041
     Dates: start: 20130409, end: 20130409
  6. ELPLAT [Suspect]
     Indication: COLON CANCER
     Dosage: INFUSION SOLUTION
     Route: 041
     Dates: start: 20130423, end: 20130423
  7. ELPLAT [Suspect]
     Indication: COLON CANCER
     Dosage: INFUSION SOLUTION
     Route: 041
     Dates: start: 20130507, end: 20130507
  8. ELPLAT [Suspect]
     Indication: COLON CANCER
     Dosage: INFUSION SOLUTION
     Route: 041
     Dates: start: 20130521, end: 20130521
  9. ELPLAT [Suspect]
     Indication: COLON CANCER
     Dosage: INFUSION SOLUTION
     Route: 041
     Dates: start: 20130702, end: 20130702
  10. ELPLAT [Suspect]
     Indication: COLON CANCER
     Dosage: INFUSION SOLUTION
     Route: 041
     Dates: start: 20130716, end: 20130716
  11. CALCIUM LEVOFOLINATE [Suspect]
     Indication: COLON CANCER
     Route: 041
     Dates: start: 20121130, end: 20121130
  12. CALCIUM LEVOFOLINATE [Suspect]
     Indication: COLON CANCER
     Route: 041
     Dates: start: 20121214, end: 20121214
  13. CALCIUM LEVOFOLINATE [Suspect]
     Indication: COLON CANCER
     Route: 041
     Dates: start: 20121228, end: 20121228
  14. CALCIUM LEVOFOLINATE [Suspect]
     Indication: COLON CANCER
     Route: 041
     Dates: start: 20130716, end: 20130716
  15. CALCIUM LEVOFOLINATE [Suspect]
     Indication: COLON CANCER
     Route: 041
     Dates: start: 20130702, end: 20130702
  16. CALCIUM LEVOFOLINATE [Suspect]
     Indication: COLON CANCER
     Route: 041
     Dates: start: 20130521, end: 20130521
  17. CALCIUM LEVOFOLINATE [Suspect]
     Indication: COLON CANCER
     Route: 041
     Dates: start: 20130507, end: 20130507
  18. CALCIUM LEVOFOLINATE [Suspect]
     Indication: COLON CANCER
     Route: 041
     Dates: start: 20130423, end: 20130423
  19. CALCIUM LEVOFOLINATE [Suspect]
     Indication: COLON CANCER
     Route: 041
     Dates: start: 20130409, end: 20130409
  20. CALCIUM LEVOFOLINATE [Suspect]
     Indication: COLON CANCER
     Route: 041
     Dates: start: 20130111, end: 20130111
  21. FLUOROURACIL [Concomitant]
     Dosage: BOLUS?3000 MG/BODY/D1-2
     Dates: start: 20121130, end: 20130702
  22. DECADRON [Concomitant]
     Dates: start: 20121130, end: 20130716
  23. GRANISETRON [Concomitant]
     Dates: start: 20121130, end: 20130716
  24. GOSHAJINKIGAN [Concomitant]
     Dosage: FORM: GRANULES
     Dates: start: 20121214
  25. VITAMEDIN CAPSULE [Concomitant]
     Dates: start: 20121214
  26. BCG VACCINE [Concomitant]
     Dates: start: 20130201, end: 20130630
  27. INOVAN [Concomitant]
     Dates: start: 20130716, end: 20130716
  28. VEEN D [Concomitant]
     Dates: start: 20130716, end: 20130716
  29. SAXIZON [Concomitant]
     Dates: start: 20130716, end: 20130716

REACTIONS (1)
  - Anaphylactic shock [Recovered/Resolved]
